FAERS Safety Report 11795569 (Version 1)
Quarter: 2015Q4

REPORT INFORMATION
  Report Type: Spontaneous
  Country: None (occurrence: None)
  Receive Date: 20151202
  Receipt Date: 20151202
  Transmission Date: 20160305
  Serious: Yes (Death, Other)
  Sender: FDA-Public Use
  Company Number: FR-MDT-ADR-2015-02279

PATIENT
  Sex: Male

DRUGS (1)
  1. BACLOFEN (UNKNOWN) [Suspect]
     Active Substance: BACLOFEN
     Dosage: TRANSPLACENTAL

REACTIONS (2)
  - Foetal distress syndrome [None]
  - Premature baby [None]
